FAERS Safety Report 7258854-X (Version None)
Quarter: 2011Q1

REPORT INFORMATION
  Report Type: 
  Country: None (occurrence: None)
  Receive Date: 20110129
  Receipt Date: 20100714
  Transmission Date: 20110831
  Serious: No
  Sender: FDA-Public Use
  Company Number: US-ABBOTT-10P-163-0651123-00

PATIENT
  Sex: Female
  Weight: 68.1 kg

DRUGS (3)
  1. MINOCYCLINE HCL [Concomitant]
     Indication: HIDRADENITIS
  2. HUMIRA [Suspect]
     Indication: PSORIASIS
     Route: 058
     Dates: start: 20100421
  3. HUMIRA [Suspect]
     Indication: HIDRADENITIS

REACTIONS (3)
  - DRUG DOSE OMISSION [None]
  - INJECTION SITE PAIN [None]
  - DEVICE MALFUNCTION [None]
